FAERS Safety Report 19900947 (Version 1)
Quarter: 2021Q3

REPORT INFORMATION
  Report Type: Report from Study
  Country: DE (occurrence: DE)
  Receive Date: 20210929
  Receipt Date: 20210929
  Transmission Date: 20211014
  Serious: Yes (Other)
  Sender: FDA-Public Use
  Company Number: DE-TAKEDA-2021TUS058391

PATIENT
  Age: 44 Year
  Sex: Male
  Weight: 86 kg

DRUGS (10)
  1. PEGYLATED COAGULATION FACTOR VIII [Suspect]
     Active Substance: ANTIHEMOPHILIC FACTOR, PEGYLATED (MW 20000) HUMAN SEQUENCE RECOMBINANT
     Indication: PROPHYLAXIS
     Dosage: 2000 INTERNATIONAL UNIT, QID
     Route: 042
     Dates: start: 20180817, end: 20200707
  2. MOBEC [Concomitant]
     Active Substance: MELOXICAM
     Indication: HAEMOPHILIC ARTHROPATHY
     Dosage: 60 MILLIGRAM, QD
     Route: 048
     Dates: start: 20120801
  3. PEGYLATED COAGULATION FACTOR VIII [Suspect]
     Active Substance: ANTIHEMOPHILIC FACTOR, PEGYLATED (MW 20000) HUMAN SEQUENCE RECOMBINANT
     Indication: PROPHYLAXIS
     Dosage: 2000 INTERNATIONAL UNIT, QID
     Route: 042
     Dates: start: 20180817, end: 20200707
  4. NOVAMINSULFON [Concomitant]
     Active Substance: METAMIZOLE
     Indication: HAEMOPHILIC ARTHROPATHY
     Dosage: UNK UNK, PRN
     Route: 048
     Dates: start: 201711
  5. PEGYLATED COAGULATION FACTOR VIII [Suspect]
     Active Substance: ANTIHEMOPHILIC FACTOR, PEGYLATED (MW 20000) HUMAN SEQUENCE RECOMBINANT
     Indication: PROPHYLAXIS
     Dosage: 2000 INTERNATIONAL UNIT, QID
     Route: 042
     Dates: start: 20180817, end: 20200707
  6. TILIDIN [Concomitant]
     Active Substance: NALOXONE HYDROCHLORIDE\TILIDINE HYDROCHLORIDE
     Indication: SPINAL OSTEOARTHRITIS
     Dosage: UNK UNK, PRN
     Route: 048
     Dates: start: 2020
  7. IBUPROFEN. [Concomitant]
     Active Substance: IBUPROFEN
     Indication: HAEMOPHILIC ARTHROPATHY
     Dosage: UNK UNK, PRN
     Route: 048
  8. PANTOZOL [Concomitant]
     Active Substance: PANTOPRAZOLE SODIUM
     Indication: ABDOMINAL DISCOMFORT
     Dosage: 40 MILLIGRAM, QD
     Route: 048
     Dates: start: 20191104
  9. IBUPROFEN. [Concomitant]
     Active Substance: IBUPROFEN
     Dosage: 400 MILLIGRAM
     Route: 048
     Dates: start: 201911
  10. ARCOXIA [Concomitant]
     Active Substance: ETORICOXIB
     Indication: HAEMOPHILIC ARTHROPATHY
     Dosage: 90 MILLIGRAM, QD
     Route: 048
     Dates: start: 201812

REACTIONS (2)
  - Post procedural haemorrhage [Recovered/Resolved]
  - Colonoscopy [Recovered/Resolved]

NARRATIVE: CASE EVENT DATE: 20200710
